FAERS Safety Report 21668418 (Version 2)
Quarter: 2022Q4

REPORT INFORMATION
  Report Type: Spontaneous
  Country: US (occurrence: US)
  Receive Date: 20221201
  Receipt Date: 20221221
  Transmission Date: 20230113
  Serious: No
  Sender: FDA-Public Use
  Company Number: US-BRISTOL-MYERS SQUIBB COMPANY-2022-146277

PATIENT
  Age: 60 Year
  Sex: Female

DRUGS (5)
  1. SOTYKTU [Suspect]
     Active Substance: DEUCRAVACITINIB
     Indication: Psoriasis
     Route: 048
     Dates: start: 20221101
  2. CARVEDILOL [Concomitant]
     Active Substance: CARVEDILOL
     Indication: Product used for unknown indication
  3. LEVOTHYROXINE [Concomitant]
     Active Substance: LEVOTHYROXINE
     Indication: Product used for unknown indication
  4. DERMA SMOOTH FS [Concomitant]
     Indication: Product used for unknown indication
  5. VTAMA [Concomitant]
     Active Substance: TAPINAROF
     Indication: Product used for unknown indication

REACTIONS (4)
  - Ocular hyperaemia [Not Recovered/Not Resolved]
  - Otorrhoea [Not Recovered/Not Resolved]
  - Pruritus [Unknown]
  - Psoriasis [Unknown]
